FAERS Safety Report 5775266-6 (Version None)
Quarter: 2008Q2

REPORT INFORMATION
  Report Type: 
  Country: None (occurrence: None)
  Receive Date: 20080616
  Receipt Date: 20080616
  Transmission Date: 20081010
  Serious: Yes (Hospitalization)
  Sender: FDA-Public Use
  Company Number: None

PATIENT
  Sex: Female
  Weight: 76.4 kg

DRUGS (3)
  1. XELODA [Suspect]
     Dosage: 39936 MG
  2. IRINOTECAN HCL [Suspect]
     Dosage: 288 MG
  3. ELOXATIN [Suspect]
     Dosage: 192 MG

REACTIONS (5)
  - DEHYDRATION [None]
  - DIARRHOEA [None]
  - INTESTINAL OBSTRUCTION [None]
  - NAUSEA [None]
  - VOMITING [None]
